FAERS Safety Report 6867608-5 (Version None)
Quarter: 2010Q3

REPORT INFORMATION
  Report Type: 
  Country: None (occurrence: None)
  Receive Date: 20100722
  Receipt Date: 20090804
  Transmission Date: 20110219
  Serious: No
  Sender: FDA-Public Use
  Company Number: US-BAUSCH-2009BL003922

PATIENT
  Age: 40 Year
  Sex: Female

DRUGS (3)
  1. OPCON-A [Suspect]
     Indication: DRY EYE
     Route: 047
     Dates: start: 20090803, end: 20090803
  2. OPCON-A [Suspect]
     Indication: EYE PRURITUS
     Route: 047
     Dates: start: 20090803, end: 20090803
  3. PRILOSEC [Concomitant]

REACTIONS (3)
  - EYE DISCHARGE [None]
  - EYE IRRITATION [None]
  - LACRIMATION INCREASED [None]
